FAERS Safety Report 9332059 (Version 1)
Quarter: 2013Q2

REPORT INFORMATION
  Report Type: Spontaneous
  Country: US (occurrence: US)
  Receive Date: 20130605
  Receipt Date: 20130605
  Transmission Date: 20140414
  Serious: Yes (Other)
  Sender: FDA-Public Use
  Company Number: US-UCBSA-087166

PATIENT
  Age: 50 Year
  Sex: Male

DRUGS (5)
  1. KEPPRA [Suspect]
     Indication: CONVULSION
     Dosage: DAILY DOSE : 750 MG
     Dates: start: 201211
  2. KEPPRA [Suspect]
     Indication: CONVULSION
  3. KEPPRA [Suspect]
     Indication: CONVULSION
  4. KEPPRA [Suspect]
     Indication: CONVULSION
     Dosage: DAILY DOSE : 1000 MG
     Dates: end: 2013
  5. ASPIRIN [Concomitant]
     Dosage: DAILY DOSE : 81 MG

REACTIONS (4)
  - Convulsion [Recovering/Resolving]
  - Grand mal convulsion [Recovering/Resolving]
  - Mood swings [Recovering/Resolving]
  - Agitation [Recovering/Resolving]
